FAERS Safety Report 9617313 (Version 1)
Quarter: 2013Q4

REPORT INFORMATION
  Report Type: Report from Study
  Country: CA (occurrence: CA)
  Receive Date: 20131011
  Receipt Date: 20131011
  Transmission Date: 20140711
  Serious: Yes (Other)
  Sender: FDA-Public Use
  Company Number: CA-JNJFOC-20131004010

PATIENT
  Age: 66 Year
  Sex: Female
  Weight: 60.33 kg

DRUGS (3)
  1. REMICADE [Suspect]
     Indication: RHEUMATOID ARTHRITIS
     Route: 042
     Dates: start: 20100908
  2. METHOTREXATE [Concomitant]
     Dosage: 4 TABLETS, WEEKLY
     Route: 048
  3. PREDNISONE [Concomitant]
     Dosage: DAILY
     Route: 048

REACTIONS (1)
  - Myocardial infarction [Recovered/Resolved]
